FAERS Safety Report 21172353 (Version 1)
Quarter: 2022Q3

REPORT INFORMATION
  Report Type: Spontaneous
  Country: US (occurrence: None)
  Receive Date: 20220803
  Receipt Date: 20220803
  Transmission Date: 20221027
  Serious: Yes (Other)
  Sender: FDA-Public Use
  Company Number: None

PATIENT
  Age: 29 Year
  Sex: Female

DRUGS (1)
  1. CITROMA [Suspect]
     Active Substance: MAGNESIUM CITRATE
     Dates: start: 20220321, end: 20220803

REACTIONS (2)
  - Feeling abnormal [None]
  - Recalled product administered [None]

NARRATIVE: CASE EVENT DATE: 20220722
